FAERS Safety Report 15805604 (Version 2)
Quarter: 2019Q1

REPORT INFORMATION
  Report Type: Report from Study
  Country: None (occurrence: BR)
  Receive Date: 20190110
  Receipt Date: 20190204
  Transmission Date: 20190417
  Serious: Yes (Disabling)
  Sender: FDA-Public Use
  Company Number: BR-ABBVIE-19K-020-2617506-00

PATIENT
  Age: 50 Year
  Sex: Female
  Weight: 59 kg

DRUGS (1)
  1. HUMIRA [Suspect]
     Active Substance: ADALIMUMAB
     Indication: RHEUMATOID ARTHRITIS
     Route: 058
     Dates: start: 20181130, end: 20181215

REACTIONS (12)
  - Gait inability [Not Recovered/Not Resolved]
  - Skin discolouration [Unknown]
  - Swelling [Unknown]
  - Pain in extremity [Unknown]
  - Pain [Unknown]
  - Pyrexia [Recovered/Resolved]
  - Feeling cold [Recovered/Resolved]
  - Peripheral swelling [Unknown]
  - Spinal pain [Unknown]
  - Rash macular [Unknown]
  - Dyspnoea [Unknown]
  - Rheumatoid arthritis [Unknown]

NARRATIVE: CASE EVENT DATE: 2018
